FAERS Safety Report 4299865-6 (Version None)
Quarter: 2004Q1

REPORT INFORMATION
  Report Type: 
  Country: None (occurrence: None)
  Receive Date: 20040219
  Receipt Date: 20040219
  Transmission Date: 20041129
  Serious: Yes (Hospitalization)
  Sender: FDA-Public Use
  Company Number: None

PATIENT
  Age: 62 Year
  Sex: Female
  Weight: 48 kg

DRUGS (2)
  1. GEMZAR [Suspect]
     Indication: PANCREATIC CARCINOMA
     Dosage: 789 MG 1 WX6 IV
     Route: 042
     Dates: start: 20031217, end: 20040120
  2. RADIATION THERAPY [Concomitant]

REACTIONS (1)
  - LIVER ABSCESS [None]
